FAERS Safety Report 4745027-5 (Version None)
Quarter: 2005Q3

REPORT INFORMATION
  Report Type: 
  Country: None (occurrence: None)
  Receive Date: 20050815
  Receipt Date: 20050804
  Transmission Date: 20060218
  Serious: Yes (Hospitalization)
  Sender: FDA-Public Use
  Company Number: PHRM2005FR02252

PATIENT
  Age: 76 Year
  Sex: Female

DRUGS (4)
  1. SINTROM [Suspect]
     Indication: THROMBOPHLEBITIS
     Dosage: 3 TO 4 MG/DAY
     Route: 048
     Dates: start: 19960615
  2. NISIS [Suspect]
     Indication: HYPERTENSION
     Dosage: 40 MG/DAY
     Route: 048
  3. LEVOTHYROX [Suspect]
     Indication: HYPOTHYROIDISM
     Dosage: 75 UG/DAY
     Route: 048
  4. LERCAN [Suspect]
     Indication: HYPERTENSION
     Dosage: 10 MG/DAY
     Route: 048

REACTIONS (12)
  - FALL [None]
  - FOREARM FRACTURE [None]
  - HEAD INJURY [None]
  - HYPOTENSION [None]
  - INJURY [None]
  - MALAISE [None]
  - OPEN WOUND [None]
  - PALLOR [None]
  - SKIN INJURY [None]
  - SUBCUTANEOUS HAEMATOMA [None]
  - TRAUMATIC HAEMATOMA [None]
  - WOUND HAEMORRHAGE [None]
